FAERS Safety Report 5719027-2 (Version None)
Quarter: 2008Q2

REPORT INFORMATION
  Report Type: 
  Country: None (occurrence: None)
  Receive Date: 20080423
  Receipt Date: 20080410
  Transmission Date: 20081010
  Serious: Yes (Life-Threatening)
  Sender: FDA-Public Use
  Company Number: 2008AL002255

PATIENT
  Age: 72 Year
  Sex: Male

DRUGS (6)
  1. VERAPAMIL HYDROCHLORIDE [Suspect]
     Indication: ATRIAL FIBRILLATION
     Dosage: 40 MG;BID;PO
     Route: 048
     Dates: start: 20080328, end: 20080331
  2. FELODIPINE [Concomitant]
  3. PARACETAMOL [Concomitant]
  4. TAMSULOSIN HCL [Concomitant]
  5. ACETYLSALICYLIC ACID SRT [Concomitant]
  6. R [Concomitant]

REACTIONS (1)
  - ANGIOEDEMA [None]
